FAERS Safety Report 22029681 (Version 1)
Quarter: 2023Q1

REPORT INFORMATION
  Report Type: Spontaneous
  Country: US (occurrence: None)
  Receive Date: 20230221
  Receipt Date: 20230221
  Transmission Date: 20230418
  Serious: No
  Sender: FDA-Public Use
  Company Number: None

PATIENT
  Age: 73 Year
  Sex: Male
  Weight: 62.1 kg

DRUGS (1)
  1. LOSARTAN [Suspect]
     Active Substance: LOSARTAN
     Indication: Hypertension
     Dosage: FREQUENCY : TWICE A DAY;?
     Route: 048
     Dates: start: 20220303, end: 20220614

REACTIONS (6)
  - Angioedema [None]
  - Swelling face [None]
  - Peripheral swelling [None]
  - Blood pressure increased [None]
  - Oedema peripheral [None]
  - Oedema peripheral [None]

NARRATIVE: CASE EVENT DATE: 20220613
